FAERS Safety Report 20663736 (Version 4)
Quarter: 2022Q2

REPORT INFORMATION
  Report Type: Report from Study
  Country: US (occurrence: US)
  Receive Date: 20220401
  Receipt Date: 20220513
  Transmission Date: 20220720
  Serious: Yes (Hospitalization, Other)
  Sender: FDA-Public Use
  Company Number: US-GILEAD-2022-0570109

PATIENT
  Sex: Female

DRUGS (8)
  1. AMBRISENTAN [Suspect]
     Active Substance: AMBRISENTAN
     Indication: Pulmonary hypertension
     Dosage: 10 MG, QD
     Route: 048
     Dates: start: 20200422
  2. AMBRISENTAN [Suspect]
     Active Substance: AMBRISENTAN
     Dosage: 5 MG, QD
     Route: 065
     Dates: start: 20200422
  3. ADEMPAS [Suspect]
     Active Substance: RIOCIGUAT
     Indication: Product used for unknown indication
     Route: 065
  4. XARELTO [Concomitant]
     Active Substance: RIVAROXABAN
  5. UPTRAVI [Concomitant]
     Active Substance: SELEXIPAG
  6. REMODULIN [Concomitant]
     Active Substance: TREPROSTINIL
  7. TYVASO [Concomitant]
     Active Substance: TREPROSTINIL
  8. ADCIRCA [Concomitant]
     Active Substance: TADALAFIL

REACTIONS (11)
  - Head injury [Unknown]
  - Seizure [Not Recovered/Not Resolved]
  - Fluid retention [Unknown]
  - Fall [Unknown]
  - Loss of consciousness [Unknown]
  - Pulmonary hypertension [Unknown]
  - Psoriasis [Unknown]
  - Dyspnoea [Recovering/Resolving]
  - Catheter site erythema [Unknown]
  - Headache [Unknown]
  - Diarrhoea [Unknown]
